FAERS Safety Report 9781036 (Version 2)
Quarter: 2014Q1

REPORT INFORMATION
  Report Type: Report from Study
  Country: US (occurrence: US)
  Receive Date: 20131224
  Receipt Date: 20140127
  Transmission Date: 20141002
  Serious: Yes (Hospitalization)
  Sender: FDA-Public Use
  Company Number: PHHO2013US016283

PATIENT
  Age: 75 Year
  Sex: Male
  Weight: 109.3 kg

DRUGS (9)
  1. ACZ885 [Suspect]
     Indication: CARDIOVASCULAR EVENT PROPHYLAXIS
     Dosage: 300 MG, UNK
     Route: 058
     Dates: start: 20110831, end: 20131003
  2. CRESTOR [Concomitant]
     Dosage: 10 MG, QD
  3. LISINOPRIL [Concomitant]
  4. HYDROCHLOROTHIAZIDE [Concomitant]
     Dosage: 45 MG (20-25), QD
  5. COUMADIN//WARFARIN SODIUM [Concomitant]
     Dosage: ^2/2^ MG TABLETS AS ^COLLECTED^
     Route: 048
  6. LASIX [Concomitant]
     Dosage: 20 MG, UNK
  7. AMLODIPINE BESYLATE [Concomitant]
     Dosage: 10 MG, QD
  8. GLYBURIDE [Concomitant]
     Dosage: 015 MG, BID
  9. ACETYLSALICYLIC ACID [Concomitant]
     Dosage: 81 MG, QD

REACTIONS (1)
  - Interstitial lung disease [Recovering/Resolving]
